FAERS Safety Report 20771480 (Version 1)
Quarter: 2022Q2

REPORT INFORMATION
  Report Type: Report from Study
  Country: IT (occurrence: IT)
  Receive Date: 20220430
  Receipt Date: 20220430
  Transmission Date: 20220720
  Serious: Yes (Death, Hospitalization)
  Sender: FDA-Public Use
  Company Number: IT-ABBVIE-22K-083-4375655-00

PATIENT
  Age: 63 Year
  Sex: Male

DRUGS (2)
  1. CARBIDOPA\LEVODOPA [Suspect]
     Active Substance: CARBIDOPA\LEVODOPA
     Indication: Parkinson^s disease
     Dosage: TOTAL DAILY DOSE (MG): 1426; PUMP SETTING: MD: 5,5+3; CR: 2,6 (24H); ED: 1,7
     Route: 050
     Dates: start: 20160719, end: 20220318
  2. CARBIDOPA\LEVODOPA [Suspect]
     Active Substance: CARBIDOPA\LEVODOPA

REACTIONS (4)
  - Candida infection [Fatal]
  - Stenotrophomonas test positive [Fatal]
  - Sepsis [Fatal]
  - Embedded device [Recovered/Resolved]

NARRATIVE: CASE EVENT DATE: 20220301
